FAERS Safety Report 4599206-0 (Version None)
Quarter: 2005Q1

REPORT INFORMATION
  Report Type: 
  Country: None (occurrence: None)
  Receive Date: 20050210
  Receipt Date: 20040224
  Transmission Date: 20050727
  Serious: Yes (Hospitalization)
  Sender: FDA-Public Use
  Company Number: 04P-163-0251272-00

PATIENT
  Age: 86 Year
  Sex: Male
  Weight: 68.0396 kg

DRUGS (5)
  1. HYTRIN [Suspect]
     Indication: BENIGN PROSTATIC HYPERPLASIA
     Dosage: 10 MG, 1 IN 1 D, PER ORAL
     Route: 048
     Dates: start: 20040213, end: 20040213
  2. ATENOLOL [Concomitant]
  3. OMEPRAZOLE [Concomitant]
  4. FLOMAX [Concomitant]
  5. ZETIA [Concomitant]

REACTIONS (1)
  - SYNCOPE [None]
